FAERS Safety Report 7668429-6 (Version None)
Quarter: 2011Q3

REPORT INFORMATION
  Report Type: 
  Country: None (occurrence: None)
  Receive Date: 20110804
  Receipt Date: 20110629
  Transmission Date: 20111222
  Serious: Yes (Other)
  Sender: FDA-Public Use
  Company Number: JPI-P-016008

PATIENT
  Age: 43 Year
  Sex: Female
  Weight: 84.8226 kg

DRUGS (10)
  1. PRIMIDONE [Concomitant]
  2. SERTRALINE HYDROCHLORIDE [Concomitant]
  3. TRIAMTERNE AND HYDROCHLOROTHIAZIDE [Concomitant]
  4. METHADONE HYDROCHLORIDE [Concomitant]
  5. MONTELUKAST SODIUM [Concomitant]
  6. ALBUTEROL SULFATE AUTOHALER [Concomitant]
  7. XYREM [Suspect]
     Indication: CATAPLEXY
     Dosage: 2 IN 1 D, ORAL
     Route: 048
     Dates: start: 20110524, end: 20110101
  8. HYDROXYZINE [Suspect]
     Indication: PRODUCT USED FOR UNKNOWN INDICATION
  9. CLONIDINE [Concomitant]
  10. OMEPRAZOLE [Concomitant]

REACTIONS (3)
  - INSOMNIA [None]
  - FATIGUE [None]
  - ELECTROCARDIOGRAM QT PROLONGED [None]
